FAERS Safety Report 6097015-7 (Version None)
Quarter: 2009Q1

REPORT INFORMATION
  Report Type: 
  Country: None (occurrence: None)
  Receive Date: 20090227
  Receipt Date: 20090217
  Transmission Date: 20090719
  Serious: Yes (Hospitalization, Other)
  Sender: FDA-Public Use
  Company Number: PHHY2008GB21785

PATIENT
  Sex: Female

DRUGS (2)
  1. CLOZARIL [Suspect]
     Dosage: UNK
     Dates: start: 20010522, end: 20080918
  2. CLOZARIL [Suspect]
     Dosage: UNK
     Dates: start: 20081224

REACTIONS (10)
  - ABNORMAL BEHAVIOUR [None]
  - CATATONIA [None]
  - EMOTIONAL DISTRESS [None]
  - INSOMNIA [None]
  - MANIA [None]
  - MENTAL IMPAIRMENT [None]
  - MUSCLE RIGIDITY [None]
  - NEUTROPHIL COUNT DECREASED [None]
  - TOOTH DISORDER [None]
  - URINARY INCONTINENCE [None]
